FAERS Safety Report 5821758-0 (Version None)
Quarter: 2008Q3

REPORT INFORMATION
  Report Type: 
  Country: None (occurrence: None)
  Receive Date: 20080724
  Receipt Date: 20080717
  Transmission Date: 20090109
  Serious: Yes (Other)
  Sender: FDA-Public Use
  Company Number: BR-PFIZER INC-2008032592

PATIENT
  Sex: Female

DRUGS (1)
  1. CITALOR [Suspect]
     Indication: BLOOD CHOLESTEROL INCREASED
     Route: 048

REACTIONS (3)
  - HYPERSENSITIVITY [None]
  - HYPOGLYCAEMIA [None]
  - MOUTH INJURY [None]
